FAERS Safety Report 25928376 (Version 2)
Quarter: 2025Q4

REPORT INFORMATION
  Report Type: Spontaneous
  Country: US (occurrence: US)
  Receive Date: 20251016
  Receipt Date: 20251024
  Transmission Date: 20260117
  Serious: Yes (Death, Hospitalization, Other)
  Sender: JOHNSON AND JOHNSON
  Company Number: US-JNJFOC-20250941904

PATIENT

DRUGS (1)
  1. CARVYKTI [Suspect]
     Active Substance: CILTACABTAGENE AUTOLEUCEL
     Indication: Product used for unknown indication
     Route: 065

REACTIONS (12)
  - Death [Fatal]
  - Hospitalisation [Unknown]
  - Aspiration [Unknown]
  - Hallucination [Unknown]
  - Transient ischaemic attack [Unknown]
  - Syncope [Unknown]
  - Hypotension [Unknown]
  - Cough [Unknown]
  - Heart rate increased [Unknown]
  - Mass [Unknown]
  - Mobility decreased [Unknown]
  - Diplopia [Unknown]
